FAERS Safety Report 25282004 (Version 4)
Quarter: 2025Q2

REPORT INFORMATION
  Report Type: Spontaneous
  Country: US (occurrence: US)
  Receive Date: 20250508
  Receipt Date: 20250626
  Transmission Date: 20250716
  Serious: No
  Sender: Haleon PLC
  Company Number: US-HALEON-2241322

PATIENT

DRUGS (3)
  1. NICORETTE WHITE ICE MINT [Suspect]
     Active Substance: NICOTINE
     Indication: Product used for unknown indication
  2. NICORETTE [Suspect]
     Active Substance: NICOTINE
     Indication: Product used for unknown indication
  3. NICORETTE SPEARMINT BURST [Suspect]
     Active Substance: NICOTINE
     Indication: Product used for unknown indication

REACTIONS (4)
  - Coating in mouth [Unknown]
  - Product solubility abnormal [Unknown]
  - Product use issue [Unknown]
  - Poor quality product administered [Unknown]
